FAERS Safety Report 8523058-7 (Version None)
Quarter: 2012Q3

REPORT INFORMATION
  Report Type: 
  Country: None (occurrence: None)
  Receive Date: 20120720
  Receipt Date: 20100211
  Transmission Date: 20120928
  Serious: Yes (Hospitalization)
  Sender: FDA-Public Use
  Company Number: AT-ROCHE-684864

PATIENT
  Age: 49 Year
  Sex: Female
  Weight: 78 kg

DRUGS (1)
  1. ACTEMRA [Suspect]
     Indication: RHEUMATOID ARTHRITIS
     Dosage: FORM: INFUSION.
     Route: 042
     Dates: start: 20091001, end: 20100202

REACTIONS (1)
  - OEDEMA [None]
